FAERS Safety Report 18269718 (Version 3)
Quarter: 2020Q4

REPORT INFORMATION
  Report Type: Spontaneous
  Country: US (occurrence: US)
  Receive Date: 20200915
  Receipt Date: 20201118
  Transmission Date: 20210113
  Serious: No
  Sender: FDA-Public Use
  Company Number: US-BAUSCH-BL-2020-025016

PATIENT
  Age: 57 Year
  Sex: Female
  Weight: 65.83 kg

DRUGS (2)
  1. NEOMYCIN AND POLYMYXIN B SULFATES AND DEXAMETHASONE OPHTHALMIC SUSP [Suspect]
     Active Substance: DEXAMETHASONE\NEOMYCIN\POLYMYXIN B SULFATE
     Indication: EYELID MARGIN CRUSTING
     Dosage: 1 DROP THREE TWICE A DAY INTO BOTH EYES
     Route: 047
     Dates: start: 20200822, end: 20200826
  2. MAXITROL [Concomitant]
     Active Substance: DEXAMETHASONE\NEOMYCIN SULFATE\POLYMYXIN B SULFATE
     Indication: PRODUCT USED FOR UNKNOWN INDICATION
     Dosage: FOR A PERIOD OF 7 DAYS
     Dates: start: 20200822

REACTIONS (2)
  - Drug ineffective [Unknown]
  - Eye pain [Recovered/Resolved]

NARRATIVE: CASE EVENT DATE: 202008
